FAERS Safety Report 18009125 (Version 1)
Quarter: 2020Q3

REPORT INFORMATION
  Report Type: Report from Study
  Country: US (occurrence: US)
  Receive Date: 20200710
  Receipt Date: 20200710
  Transmission Date: 20201103
  Serious: No
  Sender: FDA-Public Use
  Company Number: US-SAOL THERAPEUTICS-2019SAO00177

PATIENT
  Sex: Female
  Weight: 65.76 kg

DRUGS (3)
  1. LIORESAL [Suspect]
     Active Substance: BACLOFEN
     Dosage: 379.78022 ?G, \DAY
     Route: 037
     Dates: start: 20190411
  2. LIORESAL [Suspect]
     Active Substance: BACLOFEN
     Dosage: 390.06772 ?G, \DAY
     Route: 037
     Dates: start: 201902, end: 20190411
  3. LIORESAL [Suspect]
     Active Substance: BACLOFEN
     Dosage: 379.78022 ?G, \DAY
     Route: 037
     Dates: end: 201902

REACTIONS (3)
  - Unevaluable event [Recovered/Resolved]
  - Basedow^s disease [Recovered/Resolved]
  - Raynaud^s phenomenon [Recovered/Resolved]
